FAERS Safety Report 7115668-9 (Version None)
Quarter: 2010Q4

REPORT INFORMATION
  Report Type: 
  Country: None (occurrence: None)
  Receive Date: 20101122
  Receipt Date: 20101109
  Transmission Date: 20110411
  Serious: Yes (Hospitalization)
  Sender: FDA-Public Use
  Company Number: FR-SANOFI-AVENTIS-2010SA067985

PATIENT
  Age: 92 Year
  Sex: Male

DRUGS (7)
  1. XATRAL [Suspect]
     Indication: POLLAKIURIA
     Route: 048
     Dates: start: 20080301, end: 20100910
  2. KARDEGIC [Suspect]
     Route: 048
     Dates: start: 20080301, end: 20100910
  3. FURADANTINE [Suspect]
     Route: 048
     Dates: start: 20100828, end: 20100910
  4. PANTOPRAZOLE [Suspect]
     Route: 048
     Dates: start: 20100501, end: 20100910
  5. SEROPLEX [Suspect]
     Indication: DEPRESSION
     Route: 048
     Dates: start: 20090601, end: 20100910
  6. SPIRONOLACTONE [Suspect]
     Route: 048
     Dates: start: 20090101, end: 20100910
  7. BACTRIM DS [Suspect]
     Route: 048
     Dates: start: 20100817, end: 20100827

REACTIONS (3)
  - CONDITION AGGRAVATED [None]
  - PRURIGO [None]
  - TOXIC SKIN ERUPTION [None]
